FAERS Safety Report 7610216-9 (Version None)
Quarter: 2011Q3

REPORT INFORMATION
  Report Type: 
  Country: None (occurrence: None)
  Receive Date: 20110715
  Receipt Date: 20110706
  Transmission Date: 20111222
  Serious: Yes (Other)
  Sender: FDA-Public Use
  Company Number: JP-BRISTOL-MYERS SQUIBB COMPANY-15901119

PATIENT
  Sex: Male

DRUGS (4)
  1. TEGAFUR + URACIL [Suspect]
     Route: 064
  2. CISPLATIN [Suspect]
     Route: 064
  3. ETOPOSIDE [Suspect]
     Route: 064
  4. MITOMYCIN [Suspect]
     Route: 064

REACTIONS (2)
  - ACCESSORY AURICLE [None]
  - FOETAL GROWTH RESTRICTION [None]
